FAERS Safety Report 9505891 (Version 1)
Quarter: 2013Q1

REPORT INFORMATION
  Report Type: Spontaneous
  Country: US (occurrence: None)
  Receive Date: 20130228
  Receipt Date: 20130228
  Transmission Date: 20140127
  Serious: Yes (Other)
  Sender: FDA-Public Use
  Company Number: ADR-2013-00316

PATIENT
  Sex: Female

DRUGS (2)
  1. BACLOFEN INTRATHECAL [Suspect]
     Indication: MUSCLE SPASTICITY
  2. MORPHINE DRUG [Concomitant]

REACTIONS (5)
  - Blindness unilateral [None]
  - Drug withdrawal syndrome [None]
  - Somnolence [None]
  - Malaise [None]
  - Pain [None]
